FAERS Safety Report 5813282-6 (Version None)
Quarter: 2008Q3

REPORT INFORMATION
  Report Type: 
  Country: None (occurrence: None)
  Receive Date: 20080717
  Receipt Date: 20080707
  Transmission Date: 20090109
  Serious: Yes (Other)
  Sender: FDA-Public Use
  Company Number: US-JNJFOC-20080406430

PATIENT
  Sex: Female
  Weight: 70.31 kg

DRUGS (14)
  1. FENTANYL TRANSDERMAL SYSTEM [Suspect]
     Route: 062
  2. FENTANYL TRANSDERMAL SYSTEM [Suspect]
     Route: 062
  3. FENTANYL TRANSDERMAL SYSTEM [Suspect]
     Route: 062
  4. FENTANYL TRANSDERMAL SYSTEM [Suspect]
     Route: 062
  5. FENTANYL TRANSDERMAL SYSTEM [Suspect]
     Route: 062
  6. FENTANYL TRANSDERMAL SYSTEM [Suspect]
     Indication: PAIN
     Route: 062
  7. DURAGESIC-100 [Suspect]
     Indication: PAIN
     Route: 062
  8. LYRICA [Suspect]
     Indication: FIBROMYALGIA
     Route: 065
  9. ALTACE [Concomitant]
  10. REQUIP [Concomitant]
     Indication: RESTLESS LEGS SYNDROME
  11. IBUPROFEN [Concomitant]
     Indication: PAIN
     Dosage: 2-3 TIMES
  12. CELEBREX [Concomitant]
     Indication: PAIN
  13. LIPITOR [Concomitant]
     Indication: HYPERCHOLESTEROLAEMIA
  14. VERAPAMIL [Concomitant]
     Indication: HYPERTENSION

REACTIONS (13)
  - APPLICATION SITE ERYTHEMA [None]
  - APPLICATION SITE PAIN [None]
  - APPLICATION SITE PRURITUS [None]
  - APPLICATION SITE RASH [None]
  - BACK INJURY [None]
  - DRUG INEFFECTIVE [None]
  - FALL [None]
  - FIBROMYALGIA [None]
  - INTERVERTEBRAL DISC DEGENERATION [None]
  - OEDEMA PERIPHERAL [None]
  - PAIN [None]
  - PRURITUS GENERALISED [None]
  - WRONG TECHNIQUE IN DRUG USAGE PROCESS [None]
